FAERS Safety Report 7853756-X (Version None)
Quarter: 2011Q4

REPORT INFORMATION
  Report Type: 
  Country: None (occurrence: None)
  Receive Date: 20111026
  Receipt Date: 20111013
  Transmission Date: 20120403
  Serious: Yes (Life-Threatening, Hospitalization)
  Sender: FDA-Public Use
  Company Number: JP-ACTELION-A-CH2011-55571

PATIENT
  Sex: Female
  Weight: 36 kg

DRUGS (15)
  1. TRACLEER [Suspect]
     Dosage: 31.25 MG, BID
     Route: 048
     Dates: start: 20080213, end: 20080217
  2. POTASSIUM GLUCONATE TAB [Concomitant]
  3. ACETAMINOPHEN [Suspect]
     Dosage: UNK
     Dates: start: 20080221, end: 20080330
  4. WARFARIN SODIUM [Concomitant]
  5. AZOSEMIDE [Concomitant]
  6. TRACLEER [Suspect]
     Dosage: 31.25 MG, BID
     Route: 048
     Dates: start: 20080329, end: 20090416
  7. LANSOPRAZOLE [Concomitant]
  8. TRACLEER [Suspect]
     Indication: PULMONARY ARTERIAL HYPERTENSION
     Dosage: 62.5 MG, BID
     Route: 048
     Dates: start: 20080218, end: 20080328
  9. MEROPENEM [Suspect]
     Dosage: UNK
     Dates: start: 20080221, end: 20080328
  10. SPIRONOLACTONE [Concomitant]
  11. OXYGEN [Concomitant]
  12. VANCOMYCIN HYCHLORIDE [Suspect]
     Dosage: UNK
     Dates: start: 20080107, end: 20080421
  13. EPOPROSTENOL SODIUM [Concomitant]
  14. BERAPROST SODIUM [Concomitant]
  15. POTASSIUM CHLORIDE [Concomitant]

REACTIONS (2)
  - CEREBRAL INFARCTION [None]
  - HEPATIC FUNCTION ABNORMAL [None]
